FAERS Safety Report 8001260 (Version 7)
Quarter: 2016Q2

REPORT INFORMATION
  Report Type: Spontaneous
  Country: JP (occurrence: JP)
  Receive Date: 20110621
  Receipt Date: 20160511
  Transmission Date: 20160815
  Serious: Yes (Life-Threatening, Hospitalization, Other)
  Sender: FDA-Public Use
  Company Number: PHHY2011JP50287

PATIENT
  Age: 8 Year
  Sex: Female

DRUGS (17)
  1. BAKTAR [Concomitant]
     Active Substance: SULFAMETHOXAZOLE\TRIMETHOPRIM
     Indication: PROPHYLAXIS AGAINST GRAFT VERSUS HOST DISEASE
     Dosage: 1 G, BID
     Route: 048
  2. ZOVIRAX [Concomitant]
     Active Substance: ACYCLOVIR
     Indication: PROPHYLAXIS AGAINST GRAFT VERSUS HOST DISEASE
     Dosage: 200 MG, UNK
     Route: 048
     Dates: end: 20110519
  3. CYTARABINE. [Concomitant]
     Active Substance: CYTARABINE
     Indication: ACUTE LYMPHOCYTIC LEUKAEMIA
     Dosage: UNK
     Route: 065
  4. VINCRISTINE SULFATE. [Concomitant]
     Active Substance: VINCRISTINE SULFATE
     Indication: PRODUCT USED FOR UNKNOWN INDICATION
     Route: 065
  5. SPRYCEL [Concomitant]
     Active Substance: DASATINIB
     Indication: ACUTE LYMPHOCYTIC LEUKAEMIA
     Dosage: UNK
     Route: 065
  6. CYCLOPHOSPHAMIDE. [Concomitant]
     Active Substance: CYCLOPHOSPHAMIDE
     Indication: ACUTE LYMPHOCYTIC LEUKAEMIA
     Dosage: 120 MG/KG, CYCLIC
     Route: 065
  7. DOXORUBICIN [Concomitant]
     Active Substance: DOXORUBICIN
     Indication: PRODUCT USED FOR UNKNOWN INDICATION
     Route: 065
  8. GLIVEC [Suspect]
     Active Substance: IMATINIB MESYLATE
     Indication: ACUTE LYMPHOCYTIC LEUKAEMIA
     Dosage: 360 MG/M2, QD
     Route: 048
  9. GLIVEC [Suspect]
     Active Substance: IMATINIB MESYLATE
     Dosage: 200 MG/M2, QD
     Route: 048
  10. METHOTREXATE [Concomitant]
     Active Substance: METHOTREXATE
     Indication: ACUTE LYMPHOCYTIC LEUKAEMIA
     Dosage: UNK
     Route: 065
  11. ETOPOSIDE. [Concomitant]
     Active Substance: ETOPOSIDE
     Indication: ACUTE LYMPHOCYTIC LEUKAEMIA
     Dosage: 60 MG/KG, CYCLIC
     Route: 065
  12. HALIZON [Concomitant]
     Indication: PROPHYLAXIS AGAINST GRAFT VERSUS HOST DISEASE
     Dosage: 2 ML, BID
     Route: 048
  13. CYCLOSPORINE. [Concomitant]
     Active Substance: CYCLOSPORINE
     Dosage: 0.5 MG/KG, UNK, ON DAY 41
     Route: 048
  14. GLIVEC [Suspect]
     Active Substance: IMATINIB MESYLATE
     Dosage: 100 MG, BID
     Route: 048
     Dates: start: 20110115, end: 20110519
  15. CYCLOSPORINE. [Concomitant]
     Active Substance: CYCLOSPORINE
     Indication: PROPHYLAXIS AGAINST GRAFT VERSUS HOST DISEASE
     Dosage: 2 MG/KG, UNK
     Route: 048
  16. GLIVEC [Suspect]
     Active Substance: IMATINIB MESYLATE
     Dosage: MG/M2, QD, ON DAY 32 POST TRANSPLANT
     Route: 065
  17. CYCLOSPORINE. [Concomitant]
     Active Substance: CYCLOSPORINE
     Indication: ACUTE LYMPHOCYTIC LEUKAEMIA
     Dosage: 2 MG/KG, UNK, CONCENTRATION WAS 50 TO 100 NG/ML
     Route: 042

REACTIONS (19)
  - Liver injury [Recovered/Resolved]
  - Drug-induced liver injury [Recovered/Resolved]
  - Hepatomegaly [Recovered/Resolved]
  - Hepatic necrosis [Recovered/Resolved]
  - Proteinuria [Recovered/Resolved]
  - Inflammation [Recovering/Resolving]
  - Bone marrow disorder [Not Recovered/Not Resolved]
  - Coagulopathy [Unknown]
  - Altered state of consciousness [Unknown]
  - Red blood cell count decreased [Not Recovered/Not Resolved]
  - Oedema [Unknown]
  - Hepatitis fulminant [Recovered/Resolved]
  - Eosinophil count increased [Recovered/Resolved]
  - Nausea [Unknown]
  - Blood bilirubin increased [Unknown]
  - Hepatic enzyme increased [Recovered/Resolved]
  - Hepatitis acute [Recovered/Resolved]
  - Drug administered to patient of inappropriate age [Unknown]
  - Bilirubin conjugated increased [Unknown]

NARRATIVE: CASE EVENT DATE: 20110330
